FAERS Safety Report 7129732-1 (Version None)
Quarter: 2010Q4

REPORT INFORMATION
  Report Type: 
  Country: None (occurrence: None)
  Receive Date: 20101130
  Receipt Date: 20101123
  Transmission Date: 20110411
  Serious: Yes (Other)
  Sender: FDA-Public Use
  Company Number: US-US-EMD SERONO, INC.-230651J09USA

PATIENT
  Sex: Female

DRUGS (7)
  1. REBIF [Suspect]
     Indication: MULTIPLE SCLEROSIS
     Route: 058
     Dates: start: 20040107
  2. VALIUM [Concomitant]
     Indication: MUSCULOSKELETAL DISCOMFORT
  3. ZANAFLEX [Concomitant]
     Indication: MULTIPLE SCLEROSIS
  4. PROVIGIL [Concomitant]
     Indication: MULTIPLE SCLEROSIS
  5. MOTRIN [Concomitant]
     Indication: MULTIPLE SCLEROSIS
  6. DETROL LA [Concomitant]
     Indication: INCONTINENCE
  7. AMPYRA [Concomitant]
     Indication: MULTIPLE SCLEROSIS
     Dates: start: 20100101

REACTIONS (5)
  - BLOOD PRESSURE FLUCTUATION [None]
  - CORONARY ARTERY OCCLUSION [None]
  - HYPOGLYCAEMIA [None]
  - LOSS OF CONSCIOUSNESS [None]
  - MULTIPLE SCLEROSIS RELAPSE [None]
